FAERS Safety Report 8180116 (Version 4)
Quarter: 2013Q4

REPORT INFORMATION
  Report Type: Spontaneous
  Country: US (occurrence: US)
  Receive Date: 20111013
  Receipt Date: 20131108
  Transmission Date: 20140711
  Serious: Yes (Hospitalization)
  Sender: FDA-Public Use
  Company Number: US-B.I. PHARMACEUTICALS,INC./RIDGEFIELD-2011-BP-24035BP

PATIENT
  Age: 79 Year
  Sex: Female
  Weight: 86.18 kg

DRUGS (18)
  1. PRADAXA [Suspect]
     Indication: ATRIAL FIBRILLATION
     Dosage: 300 MG
     Route: 048
     Dates: start: 20111006, end: 20111104
  2. PRADAXA [Suspect]
     Indication: ANTICOAGULANT THERAPY
  3. SIMVASTATIN [Concomitant]
     Indication: BLOOD CHOLESTEROL INCREASED
     Dosage: 80 MG
     Route: 048
     Dates: start: 2007
  4. LISINOPRIL [Concomitant]
     Indication: HYPERTENSION
     Dosage: 80 MG
     Route: 048
     Dates: start: 2010
  5. METOPROLOL [Concomitant]
     Indication: HYPERTENSION
     Dosage: 50 MG
     Route: 048
     Dates: start: 2007
  6. NITROGLYCERIN [Concomitant]
     Indication: PROPHYLAXIS
     Dosage: 0.4 MG
     Route: 048
  7. MAGNESIUM SULFATE [Concomitant]
     Indication: SUPPLEMENTATION THERAPY
     Dosage: 128 MG
     Route: 048
  8. ASPIRIN [Concomitant]
     Indication: ATRIAL FIBRILLATION
     Dosage: 81 MG
     Route: 048
  9. IRON [Concomitant]
     Indication: SUPPLEMENTATION THERAPY
     Dosage: 27 MG
     Route: 048
  10. FISH OIL [Concomitant]
     Indication: SUPPLEMENTATION THERAPY
     Dosage: 1000 MG
     Route: 048
  11. NAPROXEN [Concomitant]
     Indication: PROPHYLAXIS
     Dosage: 440 MG
     Route: 048
  12. CALCIUM [Concomitant]
     Indication: SUPPLEMENTATION THERAPY
     Dosage: 1000 MG
     Route: 048
  13. GLUCOSAMINE [Concomitant]
     Indication: PROPHYLAXIS
     Dosage: 1000 MG
     Route: 048
  14. VITAMIN D [Concomitant]
     Indication: SUPPLEMENTATION THERAPY
     Dosage: 1000 MG
     Route: 048
  15. SPIRIVA [Concomitant]
     Indication: CHRONIC OBSTRUCTIVE PULMONARY DISEASE
     Dosage: 18 MCG
     Route: 055
     Dates: start: 2010
  16. HCTZ [Concomitant]
     Dosage: 25 MG
     Dates: start: 2009, end: 2011
  17. MULTIVITAMIN [Concomitant]
  18. TRAMADOL HYDROCHLORIDE [Concomitant]

REACTIONS (4)
  - Gastrointestinal haemorrhage [Unknown]
  - Anaemia [Unknown]
  - Muscular weakness [Not Recovered/Not Resolved]
  - Muscle fatigue [Recovered/Resolved]
